FAERS Safety Report 25805521 (Version 1)
Quarter: 2025Q3

REPORT INFORMATION
  Report Type: Spontaneous
  Country: US (occurrence: US)
  Receive Date: 20250916
  Receipt Date: 20250916
  Transmission Date: 20251020
  Serious: No
  Sender: ELI LILLY AND COMPANY
  Company Number: US-ELI_LILLY_AND_COMPANY-US202509006104

PATIENT
  Age: 81 Year
  Sex: Female

DRUGS (1)
  1. OLUMIANT [Suspect]
     Active Substance: BARICITINIB
     Indication: Product used for unknown indication
     Dosage: 1 MG, DAILY
     Route: 048

REACTIONS (3)
  - Stomatitis [Unknown]
  - Blood urine present [Unknown]
  - Rash macular [Unknown]
